FAERS Safety Report 11168095 (Version 4)
Quarter: 2016Q1

REPORT INFORMATION
  Report Type: Report from Study
  Country: US (occurrence: US)
  Receive Date: 20150605
  Receipt Date: 20160324
  Transmission Date: 20160525
  Serious: Yes (Hospitalization)
  Sender: FDA-Public Use
  Company Number: PHEH2015US010065

PATIENT
  Age: 44 Year
  Sex: Female
  Weight: 59.41 kg

DRUGS (3)
  1. VITAMIN D3 [Concomitant]
     Active Substance: CHOLECALCIFEROL
     Indication: PRODUCT USED FOR UNKNOWN INDICATION
     Route: 065
  2. VITAMIN B12 [Concomitant]
     Active Substance: CYANOCOBALAMIN
     Indication: PRODUCT USED FOR UNKNOWN INDICATION
     Route: 065
  3. GILENYA [Suspect]
     Active Substance: FINGOLIMOD HYDROCHLORIDE
     Indication: MULTIPLE SCLEROSIS RELAPSE
     Dosage: 0.5 MG, QD
     Route: 048
     Dates: start: 201308

REACTIONS (29)
  - Central nervous system lesion [Unknown]
  - Micturition urgency [Unknown]
  - Somnolence [Unknown]
  - Hypoaesthesia [Unknown]
  - Lhermitte^s sign [Unknown]
  - Decreased appetite [Unknown]
  - Burning sensation [Unknown]
  - Muscle spasms [Unknown]
  - Weight increased [Unknown]
  - Tension headache [Unknown]
  - Post herpetic neuralgia [Unknown]
  - Spinal column stenosis [Unknown]
  - Headache [Unknown]
  - Uhthoff^s phenomenon [Unknown]
  - Snoring [Unknown]
  - Sensory loss [Unknown]
  - Pain [Unknown]
  - Feeling hot [Unknown]
  - Initial insomnia [Unknown]
  - Alopecia [Unknown]
  - Vision blurred [Unknown]
  - Herpes zoster [Recovered/Resolved with Sequelae]
  - Paraesthesia [Unknown]
  - Fatigue [Unknown]
  - Coordination abnormal [Unknown]
  - Immunosuppression [Unknown]
  - Frustration tolerance decreased [Unknown]
  - Blister [Unknown]
  - Depression [Unknown]

NARRATIVE: CASE EVENT DATE: 20150206
